FAERS Safety Report 9464079 (Version 1)
Quarter: 2013Q3

REPORT INFORMATION
  Report Type: Spontaneous
  Country: GB (occurrence: GB)
  Receive Date: 20130819
  Receipt Date: 20130819
  Transmission Date: 20140515
  Serious: Yes (Hospitalization)
  Sender: FDA-Public Use
  Company Number: GB-MYLANLABS-2013S1017436

PATIENT
  Age: 88 Year
  Sex: Male
  Weight: 107.2 kg

DRUGS (16)
  1. SERTRALINE [Suspect]
     Indication: DYSTHYMIC DISORDER
     Route: 048
     Dates: start: 2009
  2. ASPIRIN [Interacting]
     Indication: MYOCARDIAL INFARCTION
     Route: 048
     Dates: start: 20130106
  3. NEXIUM [Interacting]
     Indication: PRODUCT USED FOR UNKNOWN INDICATION
     Route: 048
     Dates: start: 20130314
  4. NEXIUM [Interacting]
     Indication: PRODUCT USED FOR UNKNOWN INDICATION
     Route: 048
     Dates: end: 20130313
  5. SINTROM [Interacting]
     Indication: PULMONARY EMBOLISM
     Route: 048
     Dates: start: 20130109
  6. ATACAND [Concomitant]
     Indication: ESSENTIAL HYPERTENSION
  7. DAFALGAN [Concomitant]
     Indication: PAIN
  8. DANCOR [Concomitant]
     Indication: MYOCARDIAL INFARCTION
  9. EUTHYROX [Concomitant]
     Indication: HYPOTHYROIDISM
  10. FLUANXOL /00109702/ [Concomitant]
     Indication: DYSTHYMIC DISORDER
  11. GLUCOPHAGE [Concomitant]
     Indication: PRODUCT USED FOR UNKNOWN INDICATION
     Dates: start: 20130207
  12. IMOVANE [Concomitant]
     Indication: INSOMNIA
     Dates: start: 20130210
  13. LAXOBERON [Concomitant]
     Indication: CONSTIPATION
     Dates: start: 20130124
  14. REDOXON /00008001/ [Concomitant]
     Indication: VITAMIN C DEFICIENCY
     Dates: start: 20130318
  15. TORASEMIDE [Concomitant]
     Indication: ESSENTIAL HYPERTENSION
  16. VITAMIN B1 [Concomitant]
     Indication: VITAMIN B COMPLEX DEFICIENCY
     Dates: start: 20130111

REACTIONS (3)
  - Drug interaction [Unknown]
  - Petechiae [Recovering/Resolving]
  - Tongue haematoma [Recovered/Resolved]
